FAERS Safety Report 8702807 (Version 3)
Quarter: 2012Q4

REPORT INFORMATION
  Report Type: Report from Study
  Country: CA (occurrence: CA)
  Receive Date: 20120803
  Receipt Date: 20120831
  Transmission Date: 20130627
  Serious: Yes (Death, Hospitalization, Other)
  Sender: FDA-Public Use
  Company Number: CA-ABBOTT-12P-028-0963101-00

PATIENT
  Sex: Female
  Weight: 49.94 kg

DRUGS (17)
  1. HUMIRA 40 MG/0.8 ML PEN [Suspect]
     Indication: RHEUMATOID ARTHRITIS
     Route: 058
     Dates: start: 20111021, end: 20120713
  2. TYLENOL [Suspect]
     Indication: PAIN
  3. TYLENOL [Suspect]
     Indication: PAIN
     Route: 048
  4. MEPROLOL [Concomitant]
     Indication: ARRHYTHMIA
     Route: 048
  5. TOLOXIN [Concomitant]
     Indication: ARRHYTHMIA
     Route: 048
  6. WARFARIN [Concomitant]
     Indication: ANTICOAGULANT THERAPY
     Dosage: 3-4 mg daily
     Route: 048
  7. MIRTAZAPINE [Concomitant]
     Indication: SLEEP DISORDER THERAPY
     Route: 048
  8. METHOTREXATE [Concomitant]
     Indication: RHEUMATOID ARTHRITIS
     Dosage: decreased, unspecified amount
     Route: 048
  9. METHOTREXATE [Concomitant]
     Dosage: Increased, unspecified amount
     Route: 048
  10. FOLIC ACID [Concomitant]
     Indication: VITAMIN SUPPLEMENTATION
     Route: 048
  11. RABEPRAZOLE [Concomitant]
     Indication: GASTRIC DISORDER
     Route: 048
  12. OXEZE [Concomitant]
     Indication: CARDIAC FAILURE CONGESTIVE
     Route: 055
  13. FUROSEMIDE [Concomitant]
     Indication: DIURETIC THERAPY
  14. VITAMIN B12 [Concomitant]
     Indication: ANAEMIA
     Route: 048
  15. CALCIUM [Concomitant]
     Indication: OSTEOPOROSIS
     Route: 048
  16. VITAMIN D [Concomitant]
     Indication: OSTEOPOROSIS
     Route: 048
  17. EURO-FER [Concomitant]
     Indication: MINERAL SUPPLEMENTATION
     Route: 048

REACTIONS (15)
  - Liver injury [Not Recovered/Not Resolved]
  - Septic shock [Fatal]
  - Pyrexia [Recovered/Resolved]
  - Listeriosis [Fatal]
  - Infection [Recovered/Resolved]
  - Multi-organ failure [Fatal]
  - Pneumonia [Unknown]
  - Cardiac failure congestive [Not Recovered/Not Resolved]
  - Arrhythmia [Not Recovered/Not Resolved]
  - Hyperhidrosis [Not Recovered/Not Resolved]
  - Death [Fatal]
  - Tachycardia [Unknown]
  - Atrial fibrillation [Unknown]
  - Blood creatinine increased [Unknown]
  - Aspartate aminotransferase increased [Unknown]
